FAERS Safety Report 9704513 (Version 1)
Quarter: 2013Q4

REPORT INFORMATION
  Report Type: Spontaneous
  Country: US (occurrence: None)
  Receive Date: 20131121
  Receipt Date: 20131121
  Transmission Date: 20140711
  Serious: No
  Sender: FDA-Public Use
  Company Number: None

PATIENT
  Age: 66 Year
  Sex: Female

DRUGS (1)
  1. AFINITOR [Suspect]
     Route: 048
     Dates: start: 201303, end: 20131120

REACTIONS (2)
  - Drug ineffective [None]
  - Disease progression [None]
